FAERS Safety Report 9471555 (Version 1)
Quarter: 2013Q3

REPORT INFORMATION
  Report Type: Spontaneous
  Country: RO (occurrence: RO)
  Receive Date: 20130822
  Receipt Date: 20130822
  Transmission Date: 20140515
  Serious: Yes (Hospitalization)
  Sender: FDA-Public Use
  Company Number: PHHY2013RO088874

PATIENT
  Age: 57 Year
  Sex: Female

DRUGS (5)
  1. PREDNISONE [Suspect]
     Indication: GLOMERULONEPHRITIS MEMBRANOPROLIFERATIVE
     Dosage: 50 MG, QD
     Dates: end: 201004
  2. AMLODIPINE [Concomitant]
     Indication: BLOOD PRESSURE
  3. FUROSEMIDE [Concomitant]
  4. SPIRONOLACTONE [Concomitant]
  5. PROTON PUMP INHIBITORS [Concomitant]
     Indication: GASTRIC DISORDER

REACTIONS (10)
  - Shock haemorrhagic [Recovered/Resolved]
  - Strongyloidiasis [Recovered/Resolved]
  - Diabetes mellitus [Recovered/Resolved]
  - Crohn^s disease [Recovered/Resolved]
  - Gastrointestinal haemorrhage [Recovered/Resolved]
  - Gastritis erosive [Recovered/Resolved]
  - Abdominal pain [Recovered/Resolved]
  - Vomiting [Recovered/Resolved]
  - Nausea [Recovered/Resolved]
  - Acute tonsillitis [Recovered/Resolved]
